FAERS Safety Report 9263689 (Version 1)
Quarter: 2013Q2

REPORT INFORMATION
  Report Type: Spontaneous
  Country: DE (occurrence: DE)
  Receive Date: 20130430
  Receipt Date: 20130430
  Transmission Date: 20140414
  Serious: Yes (Other)
  Sender: FDA-Public Use
  Company Number: DE-PFIZER INC-2013132174

PATIENT
  Age: 65 Year
  Sex: Female

DRUGS (1)
  1. LYRICA [Suspect]
     Indication: NEURALGIA
     Dosage: 75 MG IN THE MORNING, 150 MG IN THE EVENING

REACTIONS (5)
  - Myositis [Unknown]
  - Myalgia [Unknown]
  - Fatigue [Unknown]
  - Blood pressure increased [Unknown]
  - Erythema [Unknown]
